FAERS Safety Report 11969774 (Version 1)
Quarter: 2016Q1

REPORT INFORMATION
  Report Type: Spontaneous
  Country: US (occurrence: US)
  Receive Date: 20160128
  Receipt Date: 20160128
  Transmission Date: 20160526
  Serious: Yes (Other)
  Sender: FDA-Public Use
  Company Number: US-PFIZER INC-2016036898

PATIENT
  Age: 8 Decade
  Sex: Female

DRUGS (1)
  1. ADVIL [Suspect]
     Active Substance: IBUPROFEN
     Indication: ARTHRITIS
     Dosage: ONE IN THE MORNING AND ONE AT NIGHT

REACTIONS (2)
  - Gastric ulcer [Recovered/Resolved]
  - Dyspepsia [Recovered/Resolved]
